FAERS Safety Report 6416198-X (Version None)
Quarter: 2009Q4

REPORT INFORMATION
  Report Type: 
  Country: None (occurrence: None)
  Receive Date: 20091027
  Receipt Date: 20091022
  Transmission Date: 20100525
  Serious: Yes (Hospitalization)
  Sender: FDA-Public Use
  Company Number: CA-ABBOTT-09P-028-0604609-00

PATIENT
  Sex: Male

DRUGS (1)
  1. MAVIK [Suspect]
     Indication: HYPERTENSION

REACTIONS (1)
  - CONVULSION [None]
